FAERS Safety Report 5225231-2 (Version None)
Quarter: 2007Q1

REPORT INFORMATION
  Report Type: 
  Country: None (occurrence: None)
  Receive Date: 20070131
  Receipt Date: 20070122
  Transmission Date: 20070707
  Serious: Yes (Other)
  Sender: FDA-Public Use
  Company Number: US-JNJFOC-20070106204

PATIENT
  Age: 39 Year
  Sex: Female

DRUGS (4)
  1. TOPAMAX [Suspect]
     Indication: MIGRAINE PROPHYLAXIS
     Route: 048
  2. FOLIC [Concomitant]
  3. BACTRIM [Concomitant]
  4. IRON [Concomitant]

REACTIONS (4)
  - BLINDNESS TRANSIENT [None]
  - CATARACT [None]
  - CORNEAL OEDEMA [None]
  - INTRAOCULAR PRESSURE INCREASED [None]
